FAERS Safety Report 4288768-9 (Version None)
Quarter: 2004Q1

REPORT INFORMATION
  Report Type: 
  Country: None (occurrence: None)
  Receive Date: 20040204
  Receipt Date: 20040122
  Transmission Date: 20041129
  Serious: Yes (Hospitalization)
  Sender: FDA-Public Use
  Company Number: HQWYE542323JAN04

PATIENT
  Age: 9 Year
  Sex: Female

DRUGS (3)
  1. CHILDREN'S ADVIL [Suspect]
     Indication: PYREXIA
     Dosage: 180 MG X 4/D
     Route: 048
     Dates: start: 20010310, end: 20010317
  2. AUGMENTIN [Suspect]
     Dosage: 640 MGX 3/D
     Dates: start: 20010312, end: 20010315
  3. CEFPODOXIME PROXETIL [Suspect]
     Dosage: 100 MGX 2/D
     Dates: start: 20010315, end: 20010317

REACTIONS (1)
  - CELLULITIS [None]
